FAERS Safety Report 4939594-6 (Version None)
Quarter: 2006Q1

REPORT INFORMATION
  Report Type: 
  Country: None (occurrence: None)
  Receive Date: 20060307
  Receipt Date: 20060223
  Transmission Date: 20060701
  Serious: Yes (Other)
  Sender: FDA-Public Use
  Company Number: 2006004977

PATIENT
  Age: 68 Year
  Sex: Male

DRUGS (6)
  1. TIKOSYN [Suspect]
     Indication: ATRIAL FIBRILLATION
     Dosage: 500 MCG (250 MCG, BID INTERVAL: EVERY DAY, UNKNOWN
     Route: 065
     Dates: start: 20051101
  2. COUMADIN [Suspect]
     Indication: ILL-DEFINED DISORDER
     Dosage: UNKNOWN
     Route: 065
     Dates: start: 20051101
  3. NEOSPORIN [Suspect]
     Indication: EAR INFECTION
     Dosage: UNKNOWN
     Route: 065
  4. ANTIBIOTICS (ANTIBIOTICS) [Suspect]
     Indication: ILL-DEFINED DISORDER
     Dosage: UNKNOWN
     Route: 065
  5. DOXYCYCLINE [Suspect]
     Indication: URINARY TRACT INFECTION
     Dosage: 200 MG (100 MG,BID INTERVAL: EVERY DAY), UNKNOWN
     Route: 065
     Dates: start: 20060209, end: 20060215
  6. LAC-HYDRIN (AMMONIUM LACTATE) [Concomitant]

REACTIONS (22)
  - ANOREXIA [None]
  - ARTHRITIS [None]
  - ASTHENIA [None]
  - ATRIAL FIBRILLATION [None]
  - BACTERIAL INFECTION [None]
  - CHEST PAIN [None]
  - CONDITION AGGRAVATED [None]
  - COUGH [None]
  - DIZZINESS [None]
  - DYSPNOEA [None]
  - EPISTAXIS [None]
  - EXTRASYSTOLES [None]
  - FEELING ABNORMAL [None]
  - HERPES ZOSTER [None]
  - INFECTION [None]
  - MUSCLE SPASMS [None]
  - OTITIS EXTERNA [None]
  - PENILE HAEMORRHAGE [None]
  - POST PROCEDURAL HAEMORRHAGE [None]
  - RECTAL HAEMORRHAGE [None]
  - SYNCOPE [None]
  - URINARY TRACT INFECTION [None]
